FAERS Safety Report 5598180-8 (Version None)
Quarter: 2008Q1

REPORT INFORMATION
  Report Type: 
  Country: None (occurrence: None)
  Receive Date: 20080122
  Receipt Date: 20080114
  Transmission Date: 20080703
  Serious: Yes (Hospitalization, Other)
  Sender: FDA-Public Use
  Company Number: PHBS2008US00822

PATIENT
  Age: 27 Year
  Sex: Female

DRUGS (1)
  1. LIORESAL [Suspect]
     Indication: MUSCLE SPASTICITY
     Route: 037

REACTIONS (12)
  - CANDIDIASIS [None]
  - DRUG INTOLERANCE [None]
  - DYSPHAGIA [None]
  - HAEMATURIA [None]
  - ILEUS [None]
  - LABORATORY TEST ABNORMAL [None]
  - LARGE INTESTINE PERFORATION [None]
  - OTITIS MEDIA ACUTE [None]
  - PROTHROMBIN TIME ABNORMAL [None]
  - SMALL INTESTINAL OBSTRUCTION [None]
  - STAPHYLOCOCCAL INFECTION [None]
  - VAGINAL CANDIDIASIS [None]
